FAERS Safety Report 24157997 (Version 1)
Quarter: 2024Q3

REPORT INFORMATION
  Report Type: Spontaneous
  Country: NL (occurrence: None)
  Receive Date: 20240731
  Receipt Date: 20240731
  Transmission Date: 20241017
  Serious: Yes (Life-Threatening, Hospitalization)
  Sender: ASTRAZENECA
  Company Number: 2024A160680

PATIENT
  Age: 82 Year
  Sex: Female

DRUGS (9)
  1. OMEPRAZOLE [Suspect]
     Active Substance: OMEPRAZOLE
     Indication: Product used for unknown indication
     Dates: end: 20240507
  2. RIVAROXABAN [Concomitant]
     Active Substance: RIVAROXABAN
  3. TAMSULOSIN [Concomitant]
     Active Substance: TAMSULOSIN
  4. GLIMEPIRIDE [Concomitant]
     Active Substance: GLIMEPIRIDE
  5. SITAGLIPTIN [Concomitant]
     Active Substance: SITAGLIPTIN
  6. SPIRONOLACTONE [Concomitant]
     Active Substance: SPIRONOLACTONE
  7. LOSARTAN [Concomitant]
     Active Substance: LOSARTAN
  8. ACETAMINOPHEN [Concomitant]
     Active Substance: ACETAMINOPHEN
  9. ATORVASTATIN [Concomitant]
     Active Substance: ATORVASTATIN

REACTIONS (4)
  - Hypocalcaemia [Recovered/Resolved]
  - Hypocalcaemic seizure [Unknown]
  - Hypokalaemia [Recovered/Resolved]
  - Hypomagnesaemia [Recovered/Resolved]
